FAERS Safety Report 9702815 (Version 1)
Quarter: 2013Q4

REPORT INFORMATION
  Report Type: Spontaneous
  Country: JP (occurrence: JP)
  Receive Date: 20131121
  Receipt Date: 20131121
  Transmission Date: 20140711
  Serious: Yes (Hospitalization)
  Sender: FDA-Public Use
  Company Number: JP-GLAXOSMITHKLINE-B0825030A

PATIENT
  Age: 36 Year
  Sex: Female

DRUGS (3)
  1. PAXIL [Suspect]
     Indication: DEPRESSION
     Dosage: 10MG PER DAY
     Route: 048
     Dates: start: 20120326, end: 20120624
  2. PAXIL [Suspect]
     Indication: DEPRESSION
     Dosage: 15MG PER DAY
     Route: 048
     Dates: start: 20120625, end: 20120809
  3. LENDORMIN D [Concomitant]
     Dosage: .25MG PER DAY
     Route: 048
     Dates: start: 20120326, end: 20121009

REACTIONS (9)
  - Drug-induced liver injury [Unknown]
  - Hepatic function abnormal [Recovered/Resolved]
  - Malaise [Unknown]
  - Jaundice [Unknown]
  - Decreased appetite [Unknown]
  - Blood bilirubin increased [Unknown]
  - Aspartate aminotransferase increased [Unknown]
  - Alanine aminotransferase increased [Unknown]
  - Gamma-glutamyltransferase increased [Unknown]
